FAERS Safety Report 5917091-9 (Version None)
Quarter: 2008Q4

REPORT INFORMATION
  Report Type: 
  Country: None (occurrence: None)
  Receive Date: 20081014
  Receipt Date: 20081006
  Transmission Date: 20090506
  Serious: Yes (Hospitalization)
  Sender: FDA-Public Use
  Company Number: US-ALLERGAN-0812527US

PATIENT
  Sex: Male

DRUGS (2)
  1. BOTOX [Suspect]
     Indication: BACK PAIN
     Dosage: 300 UNITS, SINGLE
     Route: 030
     Dates: start: 20080901, end: 20080901
  2. MYOBLOC [Concomitant]
     Indication: DRUG USE FOR UNKNOWN INDICATION

REACTIONS (3)
  - ASTHENIA [None]
  - HYPERHIDROSIS [None]
  - PULMONARY EMBOLISM [None]
